FAERS Safety Report 7545742-4 (Version None)
Quarter: 2011Q2

REPORT INFORMATION
  Report Type: 
  Country: None (occurrence: None)
  Receive Date: 20110614
  Receipt Date: 20110610
  Transmission Date: 20111010
  Serious: Yes (Other)
  Sender: FDA-Public Use
  Company Number: DE-SANOFI-AVENTIS-2010SA007703

PATIENT
  Sex: Male

DRUGS (10)
  1. MARCUMAR [Concomitant]
     Route: 048
  2. ATORVASTATIN [Concomitant]
     Route: 048
     Dates: end: 20100301
  3. NEXIUM [Concomitant]
     Route: 048
  4. DIGITALIS TAB [Concomitant]
     Route: 065
     Dates: start: 20110501
  5. MULTAQ [Suspect]
     Route: 048
     Dates: start: 20100206
  6. TROMCARDIN [Concomitant]
     Route: 048
  7. METOPROLOL SUCCINATE [Concomitant]
     Route: 048
     Dates: end: 20100301
  8. FUROSEMIDE [Concomitant]
     Route: 048
  9. ATACAND [Concomitant]
     Route: 048
  10. LEVOTHYROXINE SODIUM [Concomitant]
     Indication: HYPOTHYROIDISM
     Route: 048

REACTIONS (16)
  - ABDOMINAL PAIN UPPER [None]
  - HEADACHE [None]
  - DIARRHOEA [None]
  - FATIGUE [None]
  - ATRIAL FIBRILLATION [None]
  - TACHYCARDIA [None]
  - TRANSAMINASES INCREASED [None]
  - DYSPNOEA EXERTIONAL [None]
  - MUSCLE SPASMS [None]
  - C-REACTIVE PROTEIN INCREASED [None]
  - FEELING COLD [None]
  - ASPARTATE AMINOTRANSFERASE INCREASED [None]
  - INTRAOCULAR PRESSURE INCREASED [None]
  - MUSCULOSKELETAL DISCOMFORT [None]
  - ALANINE AMINOTRANSFERASE INCREASED [None]
  - SLEEP DISORDER [None]
